FAERS Safety Report 6544932-7 (Version None)
Quarter: 2010Q1

REPORT INFORMATION
  Report Type: 
  Country: None (occurrence: None)
  Receive Date: 20100121
  Receipt Date: 20091216
  Transmission Date: 20100710
  Serious: Yes (Hospitalization)
  Sender: FDA-Public Use
  Company Number: FR-JNJFOC-20100107159

PATIENT
  Age: 55 Year
  Sex: Female

DRUGS (8)
  1. IXPRIM [Suspect]
     Indication: PAIN
     Route: 048
     Dates: start: 20090819, end: 20090825
  2. DI-ANTALVIC [Suspect]
     Indication: PAIN
     Route: 048
  3. CRESTOR [Suspect]
     Indication: DRUG USE FOR UNKNOWN INDICATION
     Route: 048
  4. ALLOPURINOL [Suspect]
     Indication: DRUG USE FOR UNKNOWN INDICATION
     Route: 048
  5. AROMASIN [Suspect]
     Indication: BREAST NEOPLASM
     Route: 048
  6. SPIRONOLACTONE [Concomitant]
  7. LEVOTHYROXINE SODIUM [Concomitant]
  8. SOTALOL [Concomitant]

REACTIONS (4)
  - CHOLESTASIS [None]
  - HEPATITIS [None]
  - OVERDOSE [None]
  - PANCREATITIS ACUTE [None]
